FAERS Safety Report 8480366-6 (Version None)
Quarter: 2012Q3

REPORT INFORMATION
  Report Type: 
  Country: None (occurrence: None)
  Receive Date: 20120702
  Receipt Date: 20120627
  Transmission Date: 20120928
  Serious: Yes (Hospitalization)
  Sender: FDA-Public Use
  Company Number: US-AMGEN-USASP2012039973

PATIENT
  Sex: Female

DRUGS (1)
  1. PROLIA [Suspect]
     Indication: OSTEOPOROSIS POSTMENOPAUSAL
     Dosage: UNK UNK, Q6MO
     Dates: start: 20111120

REACTIONS (11)
  - DYSPNOEA [None]
  - HEART VALVE REPLACEMENT [None]
  - CYSTITIS [None]
  - EAR PAIN [None]
  - DECREASED APPETITE [None]
  - HYPERSENSITIVITY [None]
  - HEADACHE [None]
  - NASAL CONGESTION [None]
  - THROAT IRRITATION [None]
  - ASTHENIA [None]
  - WEIGHT DECREASED [None]
